FAERS Safety Report 23676227 (Version 2)
Quarter: 2024Q2

REPORT INFORMATION
  Report Type: Spontaneous
  Country: US (occurrence: US)
  Receive Date: 20240327
  Receipt Date: 20240521
  Transmission Date: 20240716
  Serious: Yes (Hospitalization, Other)
  Sender: FDA-Public Use
  Company Number: US-ORPHALAN-US-ORP-24-00043

PATIENT

DRUGS (1)
  1. CUVRIOR [Suspect]
     Active Substance: TRIENTINE TETRAHYDROCHLORIDE
     Indication: Hepato-lenticular degeneration
     Dosage: 300 MILLIGRAM, BID
     Route: 048
     Dates: start: 20231011

REACTIONS (1)
  - Hospitalisation [Recovered/Resolved]
